FAERS Safety Report 24294622 (Version 2)
Quarter: 2024Q3

REPORT INFORMATION
  Report Type: Spontaneous
  Country: IT (occurrence: IT)
  Receive Date: 20240906
  Receipt Date: 20240923
  Transmission Date: 20241017
  Serious: Yes (Other)
  Sender: IPSEN
  Company Number: IT-IPSEN Group, Research and Development-2024-17294

PATIENT
  Age: 57 Year
  Sex: Female

DRUGS (1)
  1. DYSPORT [Suspect]
     Active Substance: ABOBOTULINUMTOXINA
     Indication: Torticollis
     Route: 065

REACTIONS (5)
  - Dystonia [Unknown]
  - Weight decreased [Unknown]
  - Mood altered [Unknown]
  - Balance disorder [Unknown]
  - Drug ineffective [Unknown]
